FAERS Safety Report 6155738-5 (Version None)
Quarter: 2009Q2

REPORT INFORMATION
  Report Type: 
  Country: None (occurrence: None)
  Receive Date: 20090415
  Receipt Date: 20090407
  Transmission Date: 20091009
  Serious: Yes (Hospitalization)
  Sender: FDA-Public Use
  Company Number: B0570011A

PATIENT
  Age: 78 Year
  Sex: Female

DRUGS (1)
  1. ESKAZOLE [Suspect]
     Route: 048
     Dates: start: 20090302

REACTIONS (1)
  - PANCYTOPENIA [None]
